FAERS Safety Report 22773465 (Version 2)
Quarter: 2023Q4

REPORT INFORMATION
  Report Type: Spontaneous
  Country: US (occurrence: US)
  Receive Date: 20230801
  Receipt Date: 20231023
  Transmission Date: 20240110
  Serious: No
  Sender: FDA-Public Use
  Company Number: US-PFIZER INC-PV202300130847

PATIENT
  Age: 76 Year
  Sex: Female
  Weight: 81.633 kg

DRUGS (2)
  1. IBRANCE [Suspect]
     Active Substance: PALBOCICLIB
     Indication: Breast cancer
     Dosage: 100 MG ONCE A DAY FOR 21 DAYS MONTH
     Dates: start: 201711
  2. LETROZOLE [Concomitant]
     Active Substance: LETROZOLE
     Dosage: UNK
     Dates: start: 201711

REACTIONS (2)
  - Malaise [Unknown]
  - Neoplasm progression [Unknown]
